FAERS Safety Report 12754502 (Version 1)
Quarter: 2016Q3

REPORT INFORMATION
  Report Type: Spontaneous
  Country: US (occurrence: US)
  Receive Date: 20160915
  Receipt Date: 20160915
  Transmission Date: 20161109
  Serious: No
  Sender: FDA-Public Use
  Company Number: US-ASTELLAS-2016US023089

PATIENT
  Sex: Male

DRUGS (2)
  1. XTANDI [Suspect]
     Active Substance: ENZALUTAMIDE
     Route: 048
     Dates: start: 20160612, end: 20160712
  2. XTANDI [Suspect]
     Active Substance: ENZALUTAMIDE
     Indication: PROSTATE CANCER
     Route: 048
     Dates: start: 20160523, end: 20160612

REACTIONS (11)
  - Peripheral swelling [Unknown]
  - Asthenia [Unknown]
  - Drug ineffective [Unknown]
  - Oedema [Unknown]
  - Malaise [Unknown]
  - Balance disorder [Unknown]
  - Dizziness [Unknown]
  - Decreased appetite [Unknown]
  - Abasia [Unknown]
  - Arthralgia [Unknown]
  - Somnolence [Unknown]
